FAERS Safety Report 23191451 (Version 1)
Quarter: 2023Q4

REPORT INFORMATION
  Report Type: Spontaneous
  Country: US (occurrence: None)
  Receive Date: 20231116
  Receipt Date: 20231116
  Transmission Date: 20240109
  Serious: Yes (Other)
  Sender: FDA-Public Use
  Company Number: None

PATIENT

DRUGS (1)
  1. OFLOXACIN [Suspect]
     Active Substance: OFLOXACIN

REACTIONS (5)
  - Vision blurred [None]
  - Visual impairment [None]
  - Conjunctival haemorrhage [None]
  - Photophobia [None]
  - Product complaint [None]
